FAERS Safety Report 5532434-6 (Version None)
Quarter: 2007Q4

REPORT INFORMATION
  Report Type: 
  Country: None (occurrence: None)
  Receive Date: 20071120
  Receipt Date: 20070723
  Transmission Date: 20080405
  Serious: No
  Sender: FDA-Public Use
  Company Number: WAES 0707USA03771

PATIENT
  Age: 80 Year
  Sex: Female

DRUGS (11)
  1. JANUVIA [Suspect]
     Indication: DIABETES MELLITUS
     Dosage: DAILY/PO
     Route: 048
     Dates: start: 20070718
  2. ENABLEX [Concomitant]
  3. LIPITOR [Concomitant]
  4. NEURONTIN [Concomitant]
  5. PLAQUENIL [Concomitant]
  6. TAMBOCOR [Concomitant]
  7. ASPIRIN [Concomitant]
  8. CYANOCOBALAMIN [Concomitant]
  9. FOLIC ACID [Concomitant]
  10. LISINOPRIL [Concomitant]
  11. VITAMIN E [Concomitant]

REACTIONS (4)
  - BURNING SENSATION [None]
  - DYSURIA [None]
  - LIP DISORDER [None]
  - WRONG TECHNIQUE IN DRUG USAGE PROCESS [None]
